FAERS Safety Report 11027601 (Version 1)
Quarter: 2015Q2

REPORT INFORMATION
  Report Type: Report from Study
  Country: US (occurrence: US)
  Receive Date: 20150414
  Receipt Date: 20150414
  Transmission Date: 20150821
  Serious: Yes (Other)
  Sender: FDA-Public Use
  Company Number: PHEH2015US006729

PATIENT
  Sex: Female
  Weight: 74.8 kg

DRUGS (1)
  1. GILENYA [Suspect]
     Active Substance: FINGOLIMOD HYDROCHLORIDE
     Indication: MULTIPLE SCLEROSIS
     Dosage: 0.5 MG, QD
     Route: 048
     Dates: start: 20141229

REACTIONS (5)
  - Fall [Unknown]
  - Sinusitis [Recovering/Resolving]
  - Dizziness [Unknown]
  - Ankle fracture [Not Recovered/Not Resolved]
  - Balance disorder [Unknown]
